FAERS Safety Report 4597143-9 (Version None)
Quarter: 2005Q1

REPORT INFORMATION
  Report Type: 
  Country: None (occurrence: None)
  Receive Date: 20050301
  Receipt Date: 20050216
  Transmission Date: 20050727
  Serious: Yes (Other)
  Sender: FDA-Public Use
  Company Number: 2005036213

PATIENT
  Age: 36 Year
  Sex: Female

DRUGS (2)
  1. GABAPENTIN [Suspect]
     Indication: ILL-DEFINED DISORDER
     Dosage: 300 MG (300 MG , 1 IN 1 D), ORAL
     Route: 048
     Dates: start: 20041101, end: 20050128
  2. DICLOFENAC SODIUM [Concomitant]

REACTIONS (2)
  - DIZZINESS [None]
  - MEMORY IMPAIRMENT [None]
